FAERS Safety Report 6207521-X (Version None)
Quarter: 2009Q2

REPORT INFORMATION
  Report Type: 
  Country: None (occurrence: None)
  Receive Date: 20090527
  Receipt Date: 20090527
  Transmission Date: 20091009
  Serious: Yes (Disabling)
  Sender: FDA-Public Use
  Company Number: None

PATIENT
  Age: 43 Year
  Sex: Female
  Weight: 103.4201 kg

DRUGS (2)
  1. TOPRIRAMATE 25 MG TEVA [Suspect]
     Indication: MIGRAINE
     Dosage: 12.5 -1/2 TABLET- AT BEDTIME PO
     Route: 048
     Dates: start: 20090513, end: 20090522
  2. TOPRIRAMATE 25 MG TEVA [Suspect]
     Indication: WEIGHT DECREASED
     Dosage: 12.5 -1/2 TABLET- AT BEDTIME PO
     Route: 048
     Dates: start: 20090513, end: 20090522

REACTIONS (2)
  - ANGLE CLOSURE GLAUCOMA [None]
  - EYE INFLAMMATION [None]
